FAERS Safety Report 12293433 (Version 1)
Quarter: 2016Q2

REPORT INFORMATION
  Report Type: Spontaneous
  Country: FR (occurrence: FR)
  Receive Date: 20160421
  Receipt Date: 20160421
  Transmission Date: 20160815
  Serious: Yes (Hospitalization)
  Sender: FDA-Public Use
  Company Number: FR-SA-2016SA074627

PATIENT
  Age: 82 Year
  Sex: Female

DRUGS (8)
  1. TERALITHE [Interacting]
     Active Substance: LITHIUM CARBONATE
     Indication: DEPRESSION
     Dosage: START DATE: LONG TERM?FORM: PROLONGED RELEASE DIVISIBLE TABLET
     Route: 048
     Dates: end: 20151228
  2. LASILIX [Interacting]
     Active Substance: FUROSEMIDE
     Route: 048
     Dates: start: 20151215
  3. KARDEGIC [Concomitant]
     Active Substance: ASPIRIN LYSINE
     Dosage: FREQUENCY: 1 AT NOON
     Route: 048
     Dates: start: 20150925
  4. LASILIX [Interacting]
     Active Substance: FUROSEMIDE
     Dosage: DOSE DECREASED
     Route: 048
     Dates: start: 20151230, end: 20151230
  5. LOXEN LP [Concomitant]
     Active Substance: NICARDIPINE
     Dosage: FREQUENCY: 1 IN MORNING AND EVENING
     Route: 048
     Dates: start: 20150925
  6. LASILIX [Suspect]
     Active Substance: FUROSEMIDE
     Route: 048
     Dates: start: 20150925, end: 20151027
  7. COVERSYL [Suspect]
     Active Substance: PERINDOPRIL
     Dosage: FREQUENCY: 1 IN MORNING?FORM: SCORE TABLET
     Route: 065
     Dates: start: 20150925, end: 20151230
  8. KARDEGIC [Concomitant]
     Active Substance: ASPIRIN LYSINE
     Route: 048
     Dates: start: 20151215

REACTIONS (5)
  - Overdose [Unknown]
  - Nausea [Recovered/Resolved]
  - Dysarthria [Recovered/Resolved]
  - Acute kidney injury [Recovered/Resolved]
  - Vomiting [Recovered/Resolved]

NARRATIVE: CASE EVENT DATE: 20151215
